FAERS Safety Report 24247945 (Version 2)
Quarter: 2024Q3

REPORT INFORMATION
  Report Type: Report from Study
  Country: US (occurrence: US)
  Receive Date: 20240826
  Receipt Date: 20240827
  Transmission Date: 20241016
  Serious: No
  Sender: ROCHE
  Company Number: US-ROCHE-10000065290

PATIENT
  Age: 70 Year
  Sex: Female

DRUGS (2)
  1. OCREVUS [Suspect]
     Active Substance: OCRELIZUMAB
     Indication: Multiple sclerosis
     Route: 065
     Dates: start: 20181018
  2. OCREVUS [Suspect]
     Active Substance: OCRELIZUMAB
     Indication: Relapsing multiple sclerosis
     Dosage: DATE OF SERVICE: 19/MAY/2022.?16/NOV/2023, SHE RECEIVED MOST RECENT DOSE
     Route: 065

REACTIONS (2)
  - COVID-19 [Unknown]
  - Respiratory syncytial virus infection [Unknown]
